FAERS Safety Report 4396348-X (Version None)
Quarter: 2004Q3

REPORT INFORMATION
  Report Type: 
  Country: None (occurrence: None)
  Receive Date: 20040709
  Receipt Date: 20040630
  Transmission Date: 20050211
  Serious: Yes (Hospitalization)
  Sender: FDA-Public Use
  Company Number: DSK-2004-05860

PATIENT
  Age: 67 Year
  Sex: Male

DRUGS (5)
  1. TARIVID OTIC SOLUTION [Suspect]
     Indication: EAR INFECTION
     Dosage: 3 U DROPS AURICULAR (OTIC)
     Route: 001
     Dates: end: 20040401
  2. CORTANCYL (PREDNISONE) (PREDNISONE) [Concomitant]
  3. CIFLOX (CIPROFLOXACIN) (CIPROFLOXACIN) [Concomitant]
  4. AUGMENTIN (CLAVULIN) (CLAVULANATE POTASSIUM, AMOXICILLIN TRIHYDRATE) [Concomitant]
  5. ORELOX (CEFPODOXIME PROXETIL) (CEFPODOXIME PROXETIL) [Concomitant]

REACTIONS (5)
  - BLOOD CREATINE PHOSPHOKINASE INCREASED [None]
  - MUSCLE CRAMP [None]
  - MYALGIA [None]
  - PAIN [None]
  - SELF-MEDICATION [None]
